FAERS Safety Report 5388875-3 (Version None)
Quarter: 2007Q3

REPORT INFORMATION
  Report Type: 
  Country: None (occurrence: None)
  Receive Date: 20070713
  Receipt Date: 20070703
  Transmission Date: 20080115
  Serious: Yes (Other)
  Sender: FDA-Public Use
  Company Number: 163-21880-07070278

PATIENT
  Age: 67 Year
  Sex: Female

DRUGS (1)
  1. REVLIMID (LEANLIDOMIDE) (CAPSULES) [Suspect]
     Indication: MYELODYSPLASTIC SYNDROME
     Dosage: ORAL
     Route: 048

REACTIONS (1)
  - PARAPLEGIA [None]
